FAERS Safety Report 9615946 (Version 1)
Quarter: 2013Q4

REPORT INFORMATION
  Report Type: Spontaneous
  Country: US (occurrence: US)
  Receive Date: 20131011
  Receipt Date: 20131011
  Transmission Date: 20140711
  Serious: No
  Sender: FDA-Public Use
  Company Number: US-PURDUE-USA-2013-0098807

PATIENT
  Age: 50 Year
  Sex: Female

DRUGS (3)
  1. BUTRANS [Suspect]
     Indication: FIBROMYALGIA
     Dosage: 5 MCG, UNK
     Route: 062
     Dates: start: 20130210
  2. BUTRANS [Suspect]
     Indication: NECK PAIN
  3. VICOPROFEN [Suspect]
     Indication: FIBROMYALGIA
     Dosage: 7.5 MG (1-2 TABLETS), 5/DAY
     Route: 048
     Dates: end: 20130210

REACTIONS (10)
  - Drug withdrawal syndrome [Recovered/Resolved]
  - Nasal congestion [Not Recovered/Not Resolved]
  - Chills [Not Recovered/Not Resolved]
  - Hypopnoea [Recovered/Resolved]
  - Lacrimation increased [Recovered/Resolved]
  - Nausea [Recovered/Resolved]
  - Palpitations [Not Recovered/Not Resolved]
  - Pain [Not Recovered/Not Resolved]
  - Anxiety [Not Recovered/Not Resolved]
  - Vision blurred [Not Recovered/Not Resolved]
